FAERS Safety Report 19502074 (Version 2)
Quarter: 2021Q3

REPORT INFORMATION
  Report Type: Spontaneous
  Country: US (occurrence: US)
  Receive Date: 20210707
  Receipt Date: 20210903
  Transmission Date: 20211014
  Serious: Yes (Life-Threatening)
  Sender: FDA-Public Use
  Company Number: NVSC2021US151672

PATIENT
  Sex: Female

DRUGS (2)
  1. COSENTYX [Suspect]
     Active Substance: SECUKINUMAB
     Indication: PRODUCT USED FOR UNKNOWN INDICATION
     Dosage: UNK
     Route: 065
  2. VYVANSE [Concomitant]
     Active Substance: LISDEXAMFETAMINE DIMESYLATE
     Indication: PRODUCT USED FOR UNKNOWN INDICATION
     Dosage: UNK
     Route: 065

REACTIONS (10)
  - Illness [Unknown]
  - Feeling abnormal [Unknown]
  - Psoriasis [Unknown]
  - Diarrhoea [Unknown]
  - Sexually transmitted disease [Unknown]
  - Suicidal ideation [Unknown]
  - Pain [Unknown]
  - Product tampering [Unknown]
  - Road traffic accident [Unknown]
  - Drug ineffective [Unknown]
